FAERS Safety Report 10232664 (Version 1)
Quarter: 2014Q2

REPORT INFORMATION
  Report Type: Report from Study
  Country: US (occurrence: US)
  Receive Date: 20140612
  Receipt Date: 20140612
  Transmission Date: 20141212
  Serious: Yes (Other)
  Sender: FDA-Public Use
  Company Number: US-JNJFOC-20140603352

PATIENT
  Age: 88 Year
  Sex: Female
  Weight: 75.75 kg

DRUGS (1)
  1. REMICADE [Suspect]
     Indication: RHEUMATOID ARTHRITIS
     Route: 042
     Dates: start: 201202, end: 201405

REACTIONS (2)
  - Pancreatic carcinoma [Not Recovered/Not Resolved]
  - Hepatic cancer [Not Recovered/Not Resolved]
